FAERS Safety Report 18256651 (Version 1)
Quarter: 2020Q3

REPORT INFORMATION
  Report Type: Spontaneous
  Country: US (occurrence: US)
  Receive Date: 20200910
  Receipt Date: 20200910
  Transmission Date: 20201103
  Serious: No
  Sender: FDA-Public Use
  Company Number: None

PATIENT
  Age: 33 Year
  Sex: Female
  Weight: 51.71 kg

DRUGS (2)
  1. IBRANCE [Suspect]
     Active Substance: PALBOCICLIB
     Indication: BREAST CANCER
     Dosage: ?          OTHER FREQUENCY:1 CAP EVERY 21 DAY;?
     Route: 048
  2. LETRZOLE (UNKNOWN) [Concomitant]

REACTIONS (6)
  - Poverty of speech [None]
  - Fatigue [None]
  - Cognitive disorder [None]
  - Insomnia [None]
  - Alopecia [None]
  - Memory impairment [None]

NARRATIVE: CASE EVENT DATE: 20200831
